FAERS Safety Report 14102817 (Version 1)
Quarter: 2017Q4

REPORT INFORMATION
  Report Type: Spontaneous
  Country: CH (occurrence: CH)
  Receive Date: 20171018
  Receipt Date: 20171018
  Transmission Date: 20180321
  Serious: Yes (Hospitalization)
  Sender: FDA-Public Use
  Company Number: CH-ABBVIE-13P-151-1080024-00

PATIENT
  Age: 32 Year
  Sex: Male

DRUGS (2)
  1. TRUVADA [Concomitant]
     Active Substance: EMTRICITABINE\TENOFOVIR DISOPROXIL FUMARATE
     Indication: HIV INFECTION
  2. KALETRA [Suspect]
     Active Substance: LOPINAVIR\RITONAVIR
     Indication: HIV INFECTION
     Route: 065

REACTIONS (12)
  - General physical health deterioration [Recovering/Resolving]
  - Visceral leishmaniasis [Recovering/Resolving]
  - Neutrophilia [Recovering/Resolving]
  - Hepatosplenomegaly [Unknown]
  - C-reactive protein increased [Recovering/Resolving]
  - Weight decreased [Recovering/Resolving]
  - Platelet count decreased [Recovering/Resolving]
  - Gastrointestinal pain [Recovering/Resolving]
  - Lymphadenopathy [Recovering/Resolving]
  - Anaemia [Recovering/Resolving]
  - Fatigue [Recovering/Resolving]
  - Blood lactate dehydrogenase increased [Recovering/Resolving]
